FAERS Safety Report 16966819 (Version 1)
Quarter: 2019Q4

REPORT INFORMATION
  Report Type: Spontaneous
  Country: US (occurrence: US)
  Receive Date: 20191028
  Receipt Date: 20191028
  Transmission Date: 20200122
  Serious: No
  Sender: FDA-Public Use
  Company Number: US-SA-2019SA294929

PATIENT
  Age: 41 Year
  Sex: Female

DRUGS (2)
  1. CLINDAMYCIN. [Concomitant]
     Active Substance: CLINDAMYCIN
  2. DUPIXENT [Suspect]
     Active Substance: DUPILUMAB
     Indication: DERMATITIS ATOPIC
     Dosage: 300 MG, QOW
     Route: 058
     Dates: start: 20191001

REACTIONS (5)
  - Pruritus [Unknown]
  - Skin mass [Unknown]
  - Erythema [Unknown]
  - Dermatitis [Unknown]
  - Feeling hot [Unknown]

NARRATIVE: CASE EVENT DATE: 20191013
